FAERS Safety Report 4455799-5 (Version None)
Quarter: 2004Q3

REPORT INFORMATION
  Report Type: 
  Country: None (occurrence: None)
  Receive Date: 20040917
  Receipt Date: 20040901
  Transmission Date: 20050211
  Serious: Yes (Death, Hospitalization)
  Sender: FDA-Public Use
  Company Number: DE_040914229

PATIENT
  Age: 65 Year
  Sex: Male

DRUGS (2)
  1. ZYPREXA [Suspect]
     Indication: ACUTE PSYCHOSIS
     Dosage: 2.5 MG/2 DAY
  2. LEVODOPA [Concomitant]

REACTIONS (2)
  - ACUTE PSYCHOSIS [None]
  - DISEASE RECURRENCE [None]
